FAERS Safety Report 9373576 (Version 1)
Quarter: 2013Q3

REPORT INFORMATION
  Report Type: Spontaneous
  Country: BR (occurrence: BR)
  Receive Date: 20130627
  Receipt Date: 20130705
  Transmission Date: 20140515
  Serious: Yes (Hospitalization, Other)
  Sender: FDA-Public Use
  Company Number: BR-ASTRAZENECA-2013SE47599

PATIENT
  Age: 61 Year
  Sex: Male
  Weight: 72 kg

DRUGS (9)
  1. CASODEX [Suspect]
     Indication: PROSTATE CANCER
     Route: 048
     Dates: start: 2007, end: 20090503
  2. CASODEX [Suspect]
     Indication: PROSTATE CANCER
     Dosage: GEPEPROSTIN: 50 MG
     Route: 048
     Dates: start: 2007, end: 20090503
  3. ATACAND HCT [Suspect]
     Indication: HYPERTENSION
     Dosage: 16/12.5 MG
     Route: 048
  4. ZOLADEX [Suspect]
     Indication: PROSTATE CANCER
     Route: 058
     Dates: start: 20120427
  5. OMEPRAZOLE [Suspect]
     Indication: GASTRIC DISORDER
     Route: 048
  6. ROSUVASTATIN [Suspect]
     Indication: BLOOD CHOLESTEROL INCREASED
     Route: 048
  7. LECTRUM [Suspect]
     Indication: PROSTATE CANCER
     Route: 065
     Dates: start: 20090503, end: 20120329
  8. PRESSAT [Concomitant]
     Indication: HYPERTENSION
  9. PANTOPRAZOL [Concomitant]
     Indication: GASTRIC DISORDER

REACTIONS (4)
  - Malignant neoplasm progression [Not Recovered/Not Resolved]
  - Diabetes mellitus [Unknown]
  - Pancreatitis [Unknown]
  - Prostate cancer [Recovered/Resolved]
